FAERS Safety Report 20429412 (Version 1)
Quarter: 2022Q1

REPORT INFORMATION
  Report Type: Spontaneous
  Country: US (occurrence: US)
  Receive Date: 20220204
  Receipt Date: 20220204
  Transmission Date: 20220423
  Serious: Yes (Other)
  Sender: FDA-Public Use
  Company Number: US-MLMSERVICE-20220121-3333192-1

PATIENT
  Sex: Female

DRUGS (12)
  1. LITHIUM [Suspect]
     Active Substance: LITHIUM
     Indication: Schizophrenia
     Dosage: 450 MILLIGRAM, QD
     Route: 048
  2. LITHIUM [Suspect]
     Active Substance: LITHIUM
     Dosage: 900 MILLIGRAM, QD
     Route: 048
  3. QUETIAPINE [Suspect]
     Active Substance: QUETIAPINE
     Indication: Schizophrenia
     Dosage: 100 MILLIGRAM, QD
     Route: 048
  4. ARIPIPRAZOLE [Suspect]
     Active Substance: ARIPIPRAZOLE
     Indication: Schizophrenia
     Dosage: GRADUALLY TITRATED UP TO 15 MG
     Route: 048
  5. ARIPIPRAZOLE [Suspect]
     Active Substance: ARIPIPRAZOLE
     Dosage: 5 MILLIGRAM, QD
     Route: 048
  6. HALOPERIDOL [Suspect]
     Active Substance: HALOPERIDOL
     Indication: Schizophrenia
     Dosage: 1 MILLIGRAM, QD
     Route: 048
  7. RISPERIDONE [Suspect]
     Active Substance: RISPERIDONE
     Indication: Schizophrenia
     Dosage: 2 MILLIGRAM, BID (EVERY 12 HOURS)
     Route: 048
  8. RISPERIDONE [Suspect]
     Active Substance: RISPERIDONE
     Dosage: 2 MILLIGRAM, QD
     Route: 048
  9. AMILORIDE [Suspect]
     Active Substance: AMILORIDE
     Indication: Schizophrenia
     Dosage: UNK
     Route: 065
  10. VALPROIC ACID [Concomitant]
     Active Substance: VALPROIC ACID
     Indication: Schizophrenia
     Dosage: 250 MILLIGRAM, QD
     Route: 048
  11. BENZTROPINE [Concomitant]
     Active Substance: BENZTROPINE
     Indication: Prophylaxis
     Dosage: 1 MILLIGRAM, QD
     Route: 048
  12. LORAZEPAM [Concomitant]
     Active Substance: LORAZEPAM
     Indication: Schizophrenia
     Dosage: 1 MILLIGRAM, QD
     Route: 048

REACTIONS (1)
  - Akathisia [Recovered/Resolved]
